FAERS Safety Report 9016127 (Version 1)
Quarter: 2013Q1

REPORT INFORMATION
  Report Type: Spontaneous
  Country: BR (occurrence: BR)
  Receive Date: 20130116
  Receipt Date: 20130116
  Transmission Date: 20140127
  Serious: Yes (Other)
  Sender: FDA-Public Use
  Company Number: BR-PFIZER INC-2013016261

PATIENT
  Age: 76 Year
  Sex: Female
  Weight: 63 kg

DRUGS (1)
  1. CELEBRA [Suspect]
     Indication: PAIN
     Dosage: 200 MG, 2X/DAY
     Route: 048
     Dates: start: 2010

REACTIONS (4)
  - Fall [Unknown]
  - Femur fracture [Unknown]
  - Knee arthroplasty [Unknown]
  - Knee arthroplasty [Unknown]
